FAERS Safety Report 7884475-1 (Version None)
Quarter: 2011Q4

REPORT INFORMATION
  Report Type: 
  Country: None (occurrence: None)
  Receive Date: 20111102
  Receipt Date: 20111016
  Transmission Date: 20120403
  Serious: Yes (Other)
  Sender: FDA-Public Use
  Company Number: CO-PFIZER INC-2011267072

PATIENT
  Age: 33 Year
  Sex: Male

DRUGS (2)
  1. VIAGRA [Suspect]
     Indication: ERECTILE DYSFUNCTION
     Dosage: 1 TABLET
  2. VIAGRA [Suspect]
     Dosage: 8 OR 10 TABLET EVERY 8 OR 15 DAYS
     Route: 048

REACTIONS (4)
  - OVERDOSE [None]
  - DIABETES MELLITUS [None]
  - PROSTATIC DISORDER [None]
  - ALCOHOL USE [None]
